FAERS Safety Report 11599489 (Version 3)
Quarter: 2015Q4

REPORT INFORMATION
  Report Type: Report from Study
  Country: US (occurrence: US)
  Receive Date: 20151006
  Receipt Date: 20151109
  Transmission Date: 20160304
  Serious: Yes (Hospitalization)
  Sender: FDA-Public Use
  Company Number: US-KADMON PHARMACEUTICALS, LLC-KAD201510-003438

PATIENT
  Age: 61 Year
  Sex: Male
  Weight: 94.8 kg

DRUGS (20)
  1. RIBAVIRIN 200 MG TABLETS [Suspect]
     Active Substance: RIBAVIRIN
     Indication: HEPATITIS C
     Dosage: TABLET
     Route: 048
     Dates: start: 20150918, end: 20150928
  2. METHADONE 110 MG [Suspect]
     Active Substance: METHADONE HYDROCHLORIDE
     Dates: start: 201509, end: 201510
  3. ASPIRIN 81 MG [Concomitant]
     Active Substance: ASPIRIN
  4. FINASTERIDE 5 MG [Concomitant]
     Active Substance: FINASTERIDE
     Indication: PROSTATIC DISORDER
  5. CILOSTAZOL 100 MG [Concomitant]
  6. METHADONE 110 MG [Suspect]
     Active Substance: METHADONE HYDROCHLORIDE
     Dates: start: 201509
  7. NORCO(VICODIN) [Concomitant]
     Dates: start: 201503
  8. AMBIEN [Concomitant]
     Active Substance: ZOLPIDEM TARTRATE
  9. NIFEDIPINE. [Concomitant]
     Active Substance: NIFEDIPINE
  10. GABAPENTIN 300 MG [Concomitant]
     Active Substance: GABAPENTIN
  11. CILOSTAZOL. [Concomitant]
     Active Substance: CILOSTAZOL
  12. SEROQUEL [Concomitant]
     Active Substance: QUETIAPINE FUMARATE
  13. COLACE [Concomitant]
     Active Substance: DOCUSATE SODIUM
  14. FUROSEMIDE 20 MG TABLET [Concomitant]
  15. IRON PILLS [Concomitant]
     Active Substance: IRON
  16. TIMOLOL MALEATE 5 % [Concomitant]
     Dosage: EYE DROPS, SOLUTION
     Route: 047
  17. VIEKIRA PAK [Suspect]
     Active Substance: DASABUVIR\OMBITASVIR\PARITAPREVIR\RITONAVIR
     Indication: HEPATITIS C
     Dosage: TABLET
     Route: 048
     Dates: start: 20150918, end: 20150928
  18. ZOCOR [Concomitant]
     Active Substance: SIMVASTATIN
  19. SIMVASTATIN 20 MG [Concomitant]
     Active Substance: SIMVASTATIN
     Indication: BLOOD CHOLESTEROL INCREASED
  20. MILK THISTLE [Concomitant]
     Active Substance: MILK THISTLE

REACTIONS (8)
  - Hyperhidrosis [Recovered/Resolved]
  - Constipation [Recovered/Resolved]
  - Drug withdrawal syndrome [Recovered/Resolved]
  - Vomiting [Recovered/Resolved]
  - Abdominal pain upper [Recovered/Resolved]
  - Blood pressure increased [Recovered/Resolved]
  - Feeling abnormal [Recovered/Resolved]
  - Loss of consciousness [Unknown]

NARRATIVE: CASE EVENT DATE: 201509
